FAERS Safety Report 6447237-8 (Version None)
Quarter: 2009Q4

REPORT INFORMATION
  Report Type: 
  Country: None (occurrence: None)
  Receive Date: 20091119
  Receipt Date: 20091106
  Transmission Date: 20100525
  Serious: Yes (Hospitalization, Other)
  Sender: FDA-Public Use
  Company Number: PHHY2009DE44966

PATIENT
  Sex: Female

DRUGS (9)
  1. COMTESS [Suspect]
     Indication: PARKINSON'S DISEASE
     Dosage: 600 MG DAILY
     Route: 048
  2. L-DOPA/BENSERAZIDE [Concomitant]
     Dosage: 400/25 MG
  3. PRAMIPEXOLE DIHYDROCHLORIDE [Concomitant]
     Dosage: 0.7 MG/ THREE TIMES DAILY
  4. AMANTADINE [Concomitant]
     Dosage: 100 MG THREE TIME DAILY
  5. DOMPERIDONE [Concomitant]
     Dosage: 30 MG DAILY
  6. LEVOTHYROXINE SODIUM [Concomitant]
     Dosage: 50 UG
  7. ASPIRIN [Concomitant]
  8. SIMVASTATIN [Concomitant]
     Dosage: 20
  9. PANTOPRAZOLE [Concomitant]
     Dosage: 40

REACTIONS (3)
  - COLITIS [None]
  - DIARRHOEA [None]
  - DYSPHAGIA [None]
